FAERS Safety Report 9058557 (Version 4)
Quarter: 2014Q1

REPORT INFORMATION
  Report Type: Report from Study
  Country: DE (occurrence: DE)
  Receive Date: 20130211
  Receipt Date: 20140207
  Transmission Date: 20141002
  Serious: Yes (Other)
  Sender: FDA-Public Use
  Company Number: PHHO2013DE002329

PATIENT
  Sex: 0

DRUGS (7)
  1. CGS 20267 [Suspect]
     Indication: BREAST CANCER
     Dosage: 2.5 MG, QD
     Route: 048
     Dates: start: 20080109, end: 201212
  2. MEMANTINE [Concomitant]
     Indication: NERVOUS SYSTEM DISORDER
     Dosage: 10 MG, QD
     Dates: start: 201201
  3. L-THYROXINE [Concomitant]
     Dosage: UNK
  4. ENALAPRIL [Concomitant]
  5. OMEPRAZOLE [Concomitant]
  6. SIMVASTATIN [Concomitant]
  7. ACETYLSALICYLIC ACID [Concomitant]

REACTIONS (2)
  - Nervous system disorder [Unknown]
  - Spinal osteoarthritis [Unknown]
